FAERS Safety Report 10085578 (Version 1)
Quarter: 2014Q2

REPORT INFORMATION
  Report Type: Spontaneous
  Country: IT (occurrence: IT)
  Receive Date: 20140418
  Receipt Date: 20140418
  Transmission Date: 20141212
  Serious: Yes (Other)
  Sender: FDA-Public Use
  Company Number: IT-009507513-1404ITA008928

PATIENT
  Age: 24 Year
  Sex: Male

DRUGS (1)
  1. SIMVASTATIN [Suspect]
     Dosage: UNK
     Route: 048

REACTIONS (3)
  - Blood creatine phosphokinase increased [Unknown]
  - Blood cholesterol increased [Unknown]
  - Muscle spasms [Unknown]
